FAERS Safety Report 20178488 (Version 2)
Quarter: 2022Q1

REPORT INFORMATION
  Report Type: Spontaneous
  Country: LB (occurrence: LB)
  Receive Date: 20211214
  Receipt Date: 20220131
  Transmission Date: 20220424
  Serious: Yes (Death)
  Sender: FDA-Public Use
  Company Number: LB-ABBVIE-21K-093-4197225-00

PATIENT
  Age: 72 Year
  Sex: Male
  Weight: 82 kg

DRUGS (3)
  1. VENCLEXTA [Suspect]
     Active Substance: VENETOCLAX
     Indication: Chronic lymphocytic leukaemia recurrent
     Route: 048
     Dates: start: 20211126, end: 20211128
  2. PREDNISONE [Concomitant]
     Active Substance: PREDNISONE
     Indication: Chronic lymphocytic leukaemia recurrent
     Route: 048
     Dates: start: 20211121, end: 20211128
  3. ALLOPURINOL [Concomitant]
     Active Substance: ALLOPURINOL
     Indication: Hyperuricaemia
     Route: 048
     Dates: start: 20211125, end: 20211128

REACTIONS (1)
  - Septic shock [Fatal]

NARRATIVE: CASE EVENT DATE: 20211128
